FAERS Safety Report 23320736 (Version 2)
Quarter: 2024Q1

REPORT INFORMATION
  Report Type: Spontaneous
  Country: MX (occurrence: MX)
  Receive Date: 20231220
  Receipt Date: 20240123
  Transmission Date: 20240410
  Serious: Yes (Hospitalization, Other)
  Sender: FDA-Public Use
  Company Number: MX-PFIZER INC-PV202300203700

PATIENT
  Age: 33 Year
  Sex: Female
  Weight: 58 kg

DRUGS (4)
  1. DEPO-PROVERA [Suspect]
     Active Substance: MEDROXYPROGESTERONE ACETATE
     Indication: Contraception
     Dosage: 150 MG, EVERY 3 MONTHS
     Route: 058
     Dates: start: 202101, end: 202304
  2. CEPHALEXIN [Concomitant]
     Active Substance: CEPHALEXIN
     Dosage: 500 MG, 3X/DAY
     Route: 048
     Dates: start: 20211212, end: 20211217
  3. CEFTRIAXONE [Concomitant]
     Active Substance: CEFTRIAXONE\CEFTRIAXONE SODIUM
     Dosage: UNK, DAILY
     Route: 030
     Dates: start: 20211218, end: 20211223
  4. PREDNISONE [Concomitant]
     Active Substance: PREDNISONE
     Dosage: UNK, DAILY
     Route: 048
     Dates: start: 202204, end: 202207

REACTIONS (4)
  - Breast abscess [Unknown]
  - Benign breast neoplasm [Unknown]
  - Breast mass [Recovered/Resolved]
  - Off label use [Unknown]

NARRATIVE: CASE EVENT DATE: 20210101
